FAERS Safety Report 15522748 (Version 2)
Quarter: 2018Q4

REPORT INFORMATION
  Report Type: Spontaneous
  Country: CN (occurrence: CN)
  Receive Date: 20181017
  Receipt Date: 20181018
  Transmission Date: 20190205
  Serious: Yes (Other)
  Sender: FDA-Public Use
  Company Number: CN-009507513-1810CHN006414

PATIENT
  Age: 62 Year
  Sex: Male
  Weight: 56 kg

DRUGS (2)
  1. SODIUM CHLORIDE. [Suspect]
     Active Substance: SODIUM CHLORIDE
     Indication: CONGENITAL CYSTIC KIDNEY DISEASE
     Dosage: 250 ML, BID
     Route: 041
     Dates: start: 20180823, end: 20180825
  2. TIENAM [Suspect]
     Active Substance: CILASTATIN SODIUM\IMIPENEM
     Indication: CONGENITAL CYSTIC KIDNEY DISEASE
     Dosage: 1 G, BID
     Route: 041
     Dates: start: 20180823, end: 20180825

REACTIONS (2)
  - Mental disorder [Recovering/Resolving]
  - Depressed level of consciousness [Recovering/Resolving]

NARRATIVE: CASE EVENT DATE: 20180825
